FAERS Safety Report 6578121-7 (Version None)
Quarter: 2010Q1

REPORT INFORMATION
  Report Type: 
  Country: None (occurrence: None)
  Receive Date: 20100211
  Receipt Date: 20100201
  Transmission Date: 20100710
  Serious: Yes (Hospitalization)
  Sender: FDA-Public Use
  Company Number: FR-PFIZER INC-2010012611

PATIENT
  Age: 37 Year
  Sex: Male

DRUGS (12)
  1. AMLOR [Suspect]
     Dosage: 5 MG, 2X/DAY
     Route: 048
     Dates: start: 20040101
  2. ATENOLOL [Suspect]
     Dosage: UNK
     Route: 048
     Dates: start: 20040101
  3. SODIUM BICARBONATE [Suspect]
     Dosage: UNK
     Route: 048
     Dates: start: 20040101
  4. NEORAL [Suspect]
     Dosage: 60 MG, 2X/DAY
     Route: 048
     Dates: start: 20040101
  5. CELLCEPT [Suspect]
     Dosage: 1 G, 2X/DAY
     Route: 048
     Dates: start: 20040101
  6. SOLUPRED [Suspect]
     Dosage: UNK
     Route: 048
     Dates: start: 20040101
  7. EZETROL [Suspect]
     Dosage: 10 MG, 1X/DAY
     Route: 048
  8. VASTEN [Suspect]
     Dosage: 20 MG, 1X/DAY
     Route: 048
     Dates: start: 20040101
  9. MIRCERA [Suspect]
     Dosage: 75 UG, MONTHLY
     Route: 058
     Dates: start: 20040101
  10. APROVEL [Suspect]
     Dosage: 75 MG, 1X/DAY
     Route: 048
     Dates: start: 20040101
  11. DEDROGYL [Suspect]
     Dosage: UNK
     Route: 048
     Dates: start: 20040101
  12. TARDYFERON [Suspect]
     Dosage: UNK
     Route: 048
     Dates: start: 20040101

REACTIONS (2)
  - HALLUCINATION, AUDITORY [None]
  - MEMORY IMPAIRMENT [None]
